FAERS Safety Report 11924828 (Version 2)
Quarter: 2016Q1

REPORT INFORMATION
  Report Type: Report from Study
  Country: BR (occurrence: BR)
  Receive Date: 20160118
  Receipt Date: 20160202
  Transmission Date: 20160526
  Serious: Yes (Life-Threatening, Other)
  Sender: FDA-Public Use
  Company Number: BR-VIIV HEALTHCARE LIMITED-BR2016GSK005769

PATIENT
  Age: 0 Day
  Sex: Male
  Weight: 1.96 kg

DRUGS (3)
  1. EFAVIRENZ [Suspect]
     Active Substance: EFAVIRENZ
     Indication: ANTIRETROVIRAL THERAPY
     Dosage: 600 MG, QD
     Route: 064
     Dates: start: 20151113, end: 20160111
  2. LAMIVUDINE AND ZIDOVUDINE [Suspect]
     Active Substance: LAMIVUDINE\ZIDOVUDINE
     Indication: ANTIRETROVIRAL THERAPY
     Dosage: 450 MG, BID
     Route: 064
     Dates: start: 20151113, end: 20160111
  3. BENZATHINE PENICILLIN [Concomitant]
     Route: 064

REACTIONS (1)
  - Underweight [Recovered/Resolved]

NARRATIVE: CASE EVENT DATE: 20160112
